FAERS Safety Report 7691334 (Version 3)
Quarter: 2013Q3

REPORT INFORMATION
  Report Type: Spontaneous
  Country: GB (occurrence: GB)
  Receive Date: 20101203
  Receipt Date: 20130708
  Transmission Date: 20140515
  Serious: Yes (Death, Other)
  Sender: FDA-Public Use
  Company Number: GB-JNJFOC-20100803712

PATIENT
  Age: 43 Year
  Sex: Male

DRUGS (9)
  1. RISPERDAL CONSTA [Suspect]
     Indication: SCHIZOPHRENIA
     Route: 030
     Dates: start: 2005
  2. RISPERDAL [Suspect]
     Indication: SCHIZOPHRENIA
     Dosage: FOR APPROXIMATELY TWO YEARS
     Route: 048
  3. SIMVASTATINE [Concomitant]
     Route: 065
     Dates: start: 200803
  4. RAMIPRIL [Concomitant]
     Route: 065
     Dates: start: 200804
  5. AMLODIPINE [Concomitant]
     Route: 048
     Dates: start: 200805
  6. LEVOTHYROXINE SODIUM [Concomitant]
     Route: 048
     Dates: start: 20090922
  7. DESYREL [Concomitant]
     Route: 048
     Dates: start: 201003
  8. SODIUM ALGINATE [Concomitant]
     Route: 048
  9. DIAZEPAM [Concomitant]
     Route: 048
     Dates: start: 199903

REACTIONS (3)
  - Death [Fatal]
  - Suspiciousness [Unknown]
  - Drug ineffective [Unknown]
